FAERS Safety Report 15010333 (Version 1)
Quarter: 2018Q2

REPORT INFORMATION
  Report Type: Spontaneous
  Country: US (occurrence: US)
  Receive Date: 20180528
  Receipt Date: 20180528
  Transmission Date: 20180711
  Serious: Yes (Hospitalization, Disabling)
  Sender: FDA-Public Use
  Company Number: None

PATIENT
  Age: 41 Year
  Sex: Male
  Weight: 102.6 kg

DRUGS (10)
  1. LISINOPRIL. [Concomitant]
     Active Substance: LISINOPRIL
  2. GADOLINIUM [Suspect]
     Active Substance: GADOLINIUM
  3. LAMICTAL [Concomitant]
     Active Substance: LAMOTRIGINE
  4. VITAMIND WITH VITAMIN K [Concomitant]
  5. DEPAKOTE [Concomitant]
     Active Substance: DIVALPROEX SODIUM
  6. VITAMIN C [Concomitant]
     Active Substance: ASCORBIC ACID
  7. GLUTAHIAONE [Concomitant]
  8. VITAMIN B 12 INJECTION [Concomitant]
  9. TESTOSTERONE INJECTION [Concomitant]
  10. PROBIOTIC [Concomitant]
     Active Substance: PROBIOTICS NOS

REACTIONS (6)
  - Tremor [None]
  - Dysarthria [None]
  - Muscle twitching [None]
  - Seizure [None]
  - Balance disorder [None]
  - Headache [None]

NARRATIVE: CASE EVENT DATE: 20150215
